FAERS Safety Report 17830675 (Version 1)
Quarter: 2020Q2

REPORT INFORMATION
  Report Type: Spontaneous
  Country: GB (occurrence: GB)
  Receive Date: 20200527
  Receipt Date: 20200527
  Transmission Date: 20200714
  Serious: Yes (Life-Threatening)
  Sender: FDA-Public Use
  Company Number: GB-ROCHE-2609211

PATIENT
  Age: 30 Year
  Sex: Female

DRUGS (1)
  1. ACTILYSE [Suspect]
     Active Substance: ALTEPLASE
     Indication: PULMONARY EMBOLISM
     Dosage: ONE IN ONCE
     Route: 042

REACTIONS (3)
  - Cardiac arrest [Unknown]
  - Brain injury [Unknown]
  - Maternal exposure during pregnancy [Unknown]
